FAERS Safety Report 8119131-8 (Version None)
Quarter: 2012Q1

REPORT INFORMATION
  Report Type: 
  Country: None (occurrence: None)
  Receive Date: 20120207
  Receipt Date: 20120207
  Transmission Date: 20120608
  Serious: Yes (Other)
  Sender: FDA-Public Use
  Company Number: None

PATIENT
  Age: 58 Year
  Sex: Female

DRUGS (1)
  1. BACTRIM [Suspect]
     Route: 048
     Dates: start: 20120202, end: 20120206

REACTIONS (4)
  - ABDOMINAL PAIN [None]
  - GASTRIC DISORDER [None]
  - NAUSEA [None]
  - ABDOMINAL DISTENSION [None]
